FAERS Safety Report 24607719 (Version 2)
Quarter: 2024Q4

REPORT INFORMATION
  Report Type: Spontaneous
  Country: JP (occurrence: JP)
  Receive Date: 20241112
  Receipt Date: 20241209
  Transmission Date: 20250114
  Serious: Yes (Other)
  Sender: ALEXION PHARMACEUTICALS
  Company Number: JP-ASTRAZENECA-240108798_013120_P_1

PATIENT
  Age: 57 Year

DRUGS (36)
  1. DURVALUMAB [Suspect]
     Active Substance: DURVALUMAB
     Indication: Non-small cell lung cancer
     Dosage: 1500 MILLIGRAM, Q4W
  2. DURVALUMAB [Suspect]
     Active Substance: DURVALUMAB
     Dosage: 1500 MILLIGRAM, Q4W
     Route: 041
  3. DURVALUMAB [Suspect]
     Active Substance: DURVALUMAB
     Dosage: 1500 MILLIGRAM, Q4W
  4. DURVALUMAB [Suspect]
     Active Substance: DURVALUMAB
     Dosage: 1500 MILLIGRAM, Q4W
     Route: 041
  5. DURVALUMAB [Suspect]
     Active Substance: DURVALUMAB
  6. DURVALUMAB [Suspect]
     Active Substance: DURVALUMAB
     Route: 041
  7. DURVALUMAB [Suspect]
     Active Substance: DURVALUMAB
  8. DURVALUMAB [Suspect]
     Active Substance: DURVALUMAB
     Route: 041
  9. DURVALUMAB [Suspect]
     Active Substance: DURVALUMAB
  10. DURVALUMAB [Suspect]
     Active Substance: DURVALUMAB
     Route: 041
  11. DURVALUMAB [Suspect]
     Active Substance: DURVALUMAB
  12. DURVALUMAB [Suspect]
     Active Substance: DURVALUMAB
     Route: 041
  13. TREMELIMUMAB [Suspect]
     Active Substance: TREMELIMUMAB
     Indication: Non-small cell lung cancer
     Dosage: 75 MILLIGRAM, Q3W
  14. TREMELIMUMAB [Suspect]
     Active Substance: TREMELIMUMAB
     Dosage: 75 MILLIGRAM, Q3W
     Route: 041
  15. TREMELIMUMAB [Suspect]
     Active Substance: TREMELIMUMAB
     Dosage: 75 MILLIGRAM, Q3W
  16. TREMELIMUMAB [Suspect]
     Active Substance: TREMELIMUMAB
     Dosage: 75 MILLIGRAM, Q3W
     Route: 041
  17. TREMELIMUMAB [Suspect]
     Active Substance: TREMELIMUMAB
  18. TREMELIMUMAB [Suspect]
     Active Substance: TREMELIMUMAB
     Route: 041
  19. TREMELIMUMAB [Suspect]
     Active Substance: TREMELIMUMAB
  20. TREMELIMUMAB [Suspect]
     Active Substance: TREMELIMUMAB
     Route: 041
  21. CARBOPLATIN [Suspect]
     Active Substance: CARBOPLATIN
     Indication: Non-small cell lung cancer
     Dosage: DOSE UNKNOWN
     Route: 065
  22. CARBOPLATIN [Suspect]
     Active Substance: CARBOPLATIN
     Dosage: DOSE UNKNOWN
     Route: 065
  23. CARBOPLATIN [Suspect]
     Active Substance: CARBOPLATIN
     Dosage: DOSE UNKNOWN
     Route: 065
  24. CARBOPLATIN [Suspect]
     Active Substance: CARBOPLATIN
     Dosage: DOSE UNKNOWN
     Route: 065
  25. CARBOPLATIN [Suspect]
     Active Substance: CARBOPLATIN
     Dosage: DOSE UNKNOWN
     Route: 065
  26. CARBOPLATIN [Suspect]
     Active Substance: CARBOPLATIN
     Dosage: DOSE UNKNOWN
     Route: 065
  27. CARBOPLATIN [Suspect]
     Active Substance: CARBOPLATIN
     Dosage: DOSE UNKNOWN
     Route: 065
  28. CARBOPLATIN [Suspect]
     Active Substance: CARBOPLATIN
     Dosage: DOSE UNKNOWN
     Route: 065
  29. PACLITAXEL [Suspect]
     Active Substance: PACLITAXEL
     Indication: Non-small cell lung cancer
     Dosage: DOSE UNKNOWN
     Route: 065
  30. PACLITAXEL [Suspect]
     Active Substance: PACLITAXEL
     Dosage: DOSE UNKNOWN
     Route: 065
  31. PACLITAXEL [Suspect]
     Active Substance: PACLITAXEL
     Dosage: DOSE UNKNOWN
     Route: 065
  32. PACLITAXEL [Suspect]
     Active Substance: PACLITAXEL
     Dosage: DOSE UNKNOWN
     Route: 065
  33. PACLITAXEL [Suspect]
     Active Substance: PACLITAXEL
     Dosage: DOSE UNKNOWN
     Route: 065
  34. PACLITAXEL [Suspect]
     Active Substance: PACLITAXEL
     Dosage: DOSE UNKNOWN
     Route: 065
  35. PACLITAXEL [Suspect]
     Active Substance: PACLITAXEL
     Dosage: DOSE UNKNOWN
     Route: 065
  36. PACLITAXEL [Suspect]
     Active Substance: PACLITAXEL
     Dosage: DOSE UNKNOWN
     Route: 065

REACTIONS (2)
  - Hypopituitarism [Unknown]
  - Liver disorder [Unknown]
